FAERS Safety Report 10035790 (Version 2)
Quarter: 2014Q2

REPORT INFORMATION
  Report Type: Spontaneous
  Country: CZ (occurrence: CZ)
  Receive Date: 20140325
  Receipt Date: 20140401
  Transmission Date: 20141212
  Serious: Yes (Hospitalization)
  Sender: FDA-Public Use
  Company Number: CZ-GLAXOSMITHKLINE-B0979392A

PATIENT
  Sex: Female

DRUGS (3)
  1. AVAMYS [Suspect]
     Indication: RHINITIS ALLERGIC
     Dosage: 2SPR PER DAY
     Route: 045
  2. TRITACE [Concomitant]
     Dosage: 1.25U PER DAY
  3. UNKNOWN MEDICATION [Concomitant]
     Indication: NEOPLASM MALIGNANT

REACTIONS (6)
  - Hypersensitivity [Recovered/Resolved]
  - Chest pain [Recovered/Resolved]
  - Dyspnoea [Recovered/Resolved]
  - Wheezing [Recovered/Resolved]
  - Head discomfort [Recovered/Resolved]
  - Bronchospasm [Recovered/Resolved]
